FAERS Safety Report 22163041 (Version 1)
Quarter: 2023Q2

REPORT INFORMATION
  Report Type: Spontaneous
  Country: ES (occurrence: ES)
  Receive Date: 20230401
  Receipt Date: 20230401
  Transmission Date: 20230721
  Serious: Yes (Other)
  Sender: FDA-Public Use
  Company Number: None

PATIENT
  Age: 57 Year
  Sex: Female

DRUGS (2)
  1. TOCILIZUMAB [Suspect]
     Active Substance: TOCILIZUMAB
     Indication: Myalgia
     Route: 058
     Dates: start: 20180808, end: 20180903
  2. PREDNISONE [Concomitant]
     Active Substance: PREDNISONE
     Indication: Myalgia
     Dosage: 1-0-1
     Route: 065
     Dates: start: 201807

REACTIONS (1)
  - Cutaneous vasculitis [Recovered/Resolved]

NARRATIVE: CASE EVENT DATE: 20180903
